FAERS Safety Report 9828610 (Version 2)
Quarter: 2014Q1

REPORT INFORMATION
  Report Type: Spontaneous
  Country: US (occurrence: US)
  Receive Date: 20140117
  Receipt Date: 20140226
  Transmission Date: 20141002
  Serious: Yes (Other)
  Sender: FDA-Public Use
  Company Number: US-TEVA-456595USA

PATIENT
  Age: 70 Year
  Sex: Female

DRUGS (1)
  1. PROAIR HFA [Suspect]
     Route: 055
     Dates: start: 20140113

REACTIONS (6)
  - Choking [Recovered/Resolved]
  - Throat tightness [Recovered/Resolved]
  - Dry throat [Unknown]
  - Dyspnoea [Unknown]
  - Dysphagia [Unknown]
  - Device malfunction [Unknown]
